FAERS Safety Report 9164124 (Version 1)
Quarter: 2013Q1

REPORT INFORMATION
  Report Type: Spontaneous
  Country: CA (occurrence: CA)
  Receive Date: 20130315
  Receipt Date: 20130315
  Transmission Date: 20140127
  Serious: Yes (Other)
  Sender: FDA-Public Use
  Company Number: CA-AMGEN-CANSP2013015181

PATIENT
  Age: 62 Year
  Sex: Female
  Weight: 59.09 kg

DRUGS (1)
  1. PROLIA [Suspect]
     Indication: OSTEOPOROSIS POSTMENOPAUSAL
     Dosage: UNK
     Dates: start: 20120712

REACTIONS (11)
  - Pain [Unknown]
  - Inflammation [Unknown]
  - Pain in extremity [Unknown]
  - Joint crepitation [Unknown]
  - Joint stiffness [Unknown]
  - Feeling hot [Unknown]
  - Skin burning sensation [Unknown]
  - Pruritus [Unknown]
  - Local swelling [Unknown]
  - Insomnia [Unknown]
  - Urticaria [Unknown]
